FAERS Safety Report 13597048 (Version 2)
Quarter: 2017Q4

REPORT INFORMATION
  Report Type: Spontaneous
  Country: JP (occurrence: JP)
  Receive Date: 20170531
  Receipt Date: 20171121
  Transmission Date: 20180320
  Serious: Yes (Death, Other)
  Sender: FDA-Public Use
  Company Number: JP-BRISTOL-MYERS SQUIBB COMPANY-BMS-2017-045818

PATIENT
  Age: 54 Year
  Sex: Male

DRUGS (1)
  1. OPDIVO [Suspect]
     Active Substance: NIVOLUMAB
     Indication: NON-SMALL CELL LUNG CANCER
     Dosage: 3 MG/KG, UNK
     Route: 041
     Dates: start: 20170516

REACTIONS (8)
  - Malignant neoplasm progression [Fatal]
  - Pyrexia [Unknown]
  - Nausea [Unknown]
  - Dehydration [Unknown]
  - Ventricular fibrillation [Fatal]
  - Atrial fibrillation [Unknown]
  - Vein collapse [Unknown]
  - Lung infiltration [Unknown]

NARRATIVE: CASE EVENT DATE: 20170516
